FAERS Safety Report 17849162 (Version 1)
Quarter: 2020Q2

REPORT INFORMATION
  Report Type: Spontaneous
  Country: US (occurrence: US)
  Receive Date: 20200602
  Receipt Date: 20200602
  Transmission Date: 20200714
  Serious: Yes (Other)
  Sender: FDA-Public Use
  Company Number: US-AMGEN-USASP2020085028

PATIENT
  Age: 82 Year

DRUGS (2)
  1. PANITUMUMAB [Suspect]
     Active Substance: PANITUMUMAB
     Indication: PRODUCT USED FOR UNKNOWN INDICATION
     Dosage: 100 MILLIGRAM
     Route: 042
  2. PANITUMUMAB [Suspect]
     Active Substance: PANITUMUMAB
     Dosage: 50 MILLIGRAM
     Route: 042

REACTIONS (7)
  - Surgery [Unknown]
  - Electrocardiogram QT prolonged [Unknown]
  - Gastrointestinal disorder [Unknown]
  - Hypertension [Unknown]
  - Abdominal pain [Unknown]
  - Infection [Unknown]
  - Nausea [Unknown]
